FAERS Safety Report 4782747-0 (Version None)
Quarter: 2005Q3

REPORT INFORMATION
  Report Type: 
  Country: None (occurrence: None)
  Receive Date: 20050927
  Receipt Date: 20050912
  Transmission Date: 20060218
  Serious: Yes (Hospitalization)
  Sender: FDA-Public Use
  Company Number: 2005P1000424

PATIENT
  Age: 76 Year
  Sex: Male
  Weight: 78 kg

DRUGS (11)
  1. RETEVASE [Suspect]
     Indication: ACUTE MYOCARDIAL INFARCTION
     Dosage: IV
     Route: 042
     Dates: start: 20041208, end: 20041208
  2. ABCIXIMAB (ABCIXIMAB) [Suspect]
     Indication: ACUTE MYOCARDIAL INFARCTION
     Dosage: IV
     Route: 042
     Dates: start: 20041208
  3. RANITIDINE [Concomitant]
  4. IBUPROFEN [Concomitant]
  5. ASPIRIN [Concomitant]
  6. ALL THERAPEUTIC PRODUCTS [Concomitant]
  7. PIRACETAM [Concomitant]
  8. AMINOPHYLLINE [Concomitant]
  9. FUROSEMIDE [Concomitant]
  10. SPIRONOLACTONE [Concomitant]
  11. TIAPRIDE [Concomitant]

REACTIONS (1)
  - CORONARY ARTERY DISEASE [None]
